FAERS Safety Report 21796088 (Version 2)
Quarter: 2023Q1

REPORT INFORMATION
  Report Type: Spontaneous
  Country: PL (occurrence: PL)
  Receive Date: 20221229
  Receipt Date: 20230112
  Transmission Date: 20230417
  Serious: Yes (Death, Hospitalization)
  Sender: FDA-Public Use
  Company Number: PL-TEVA-2022-PL-2840296

PATIENT
  Age: 67 Year
  Sex: Male

DRUGS (3)
  1. MYCOPHENOLATE MOFETIL [Suspect]
     Active Substance: MYCOPHENOLATE MOFETIL
     Indication: Immunosuppressant drug therapy
     Route: 065
  2. PREDNISONE [Suspect]
     Active Substance: PREDNISONE
     Indication: Immunosuppressant drug therapy
     Route: 065
  3. TACROLIMUS [Suspect]
     Active Substance: TACROLIMUS
     Indication: Immunosuppressant drug therapy
     Route: 065

REACTIONS (7)
  - Gastrointestinal mucormycosis [Fatal]
  - Renal cortical necrosis [Fatal]
  - Renal papillary necrosis [Fatal]
  - Fungal sepsis [Fatal]
  - Gastrointestinal gangrene [Fatal]
  - Gastrointestinal necrosis [Fatal]
  - Pancreatitis [Unknown]
